FAERS Safety Report 19216561 (Version 2)
Quarter: 2021Q3

REPORT INFORMATION
  Report Type: Other
  Country: CA (occurrence: CA)
  Receive Date: 20210505
  Receipt Date: 20210827
  Transmission Date: 20211014
  Serious: Yes (Other)
  Sender: FDA-Public Use
  Company Number: CA-APOTEX-2021AP010682

PATIENT
  Sex: Male
  Weight: 132 kg

DRUGS (6)
  1. SYMBICORT [Suspect]
     Active Substance: BUDESONIDE\FORMOTEROL FUMARATE DIHYDRATE
     Indication: PRODUCT USED FOR UNKNOWN INDICATION
     Dosage: 4 DOSAGE FORM, BID
  2. ADVAIR HFA [Suspect]
     Active Substance: FLUTICASONE PROPIONATE\SALMETEROL XINAFOATE
     Indication: ASTHMA
     Dosage: UNK
     Route: 065
  3. SPIRIVA [Suspect]
     Active Substance: TIOTROPIUM BROMIDE MONOHYDRATE
     Indication: PRODUCT USED FOR UNKNOWN INDICATION
     Dosage: 2 DOSAGE FORM, QD
     Route: 065
  4. FLUTICASONE;SALMETEROL [Suspect]
     Active Substance: FLUTICASONE PROPIONATE\SALMETEROL XINAFOATE
     Indication: ASTHMA
     Dosage: UNK
     Route: 065
  5. PREDNISONE. [Suspect]
     Active Substance: PREDNISONE
     Indication: PRODUCT USED FOR UNKNOWN INDICATION
     Dosage: 10 MILLIGRAM
     Route: 065
  6. SALBUTAMOL [Suspect]
     Active Substance: ALBUTEROL
     Indication: ASTHMA
     Dosage: 4 DOSAGE FORM, BID
     Route: 065

REACTIONS (12)
  - Asthma [Unknown]
  - Wheezing [Unknown]
  - Dyspnoea [Unknown]
  - Eosinophil count increased [Unknown]
  - Therapeutic product effect incomplete [Unknown]
  - Loss of personal independence in daily activities [Unknown]
  - Cough [Unknown]
  - Chest discomfort [Unknown]
  - Sleep disorder due to a general medical condition [Unknown]
  - White blood cell count increased [Unknown]
  - Frustration tolerance decreased [Unknown]
  - Neutrophil count increased [Unknown]
